FAERS Safety Report 8456452-3 (Version None)
Quarter: 2012Q2

REPORT INFORMATION
  Report Type: 
  Country: None (occurrence: None)
  Receive Date: 20120621
  Receipt Date: 20120613
  Transmission Date: 20120825
  Serious: Yes (Disabling)
  Sender: FDA-Public Use
  Company Number: CA-ROCHE-1079624

PATIENT
  Sex: Female

DRUGS (1)
  1. OMALIZUMAB [Suspect]
     Indication: ASTHMA
     Route: 058
     Dates: start: 20081208

REACTIONS (5)
  - JOINT SWELLING [None]
  - ERYTHEMA [None]
  - ARTHRALGIA [None]
  - HEADACHE [None]
  - WALKING AID USER [None]
